FAERS Safety Report 6360079-7 (Version None)
Quarter: 2009Q3

REPORT INFORMATION
  Report Type: 
  Country: None (occurrence: None)
  Receive Date: 20090917
  Receipt Date: 20090910
  Transmission Date: 20100115
  Serious: Yes (Other)
  Sender: FDA-Public Use
  Company Number: PHHY2009BR39239

PATIENT
  Age: 50 Year
  Sex: Female
  Weight: 81 kg

DRUGS (1)
  1. CODATEN [Suspect]
     Indication: RENAL COLIC
     Dosage: 50 MG, Q8H
     Route: 048
     Dates: start: 20080101

REACTIONS (3)
  - BACK PAIN [None]
  - BONE PAIN [None]
  - RENAL SURGERY [None]
